FAERS Safety Report 17764771 (Version 2)
Quarter: 2020Q2

REPORT INFORMATION
  Report Type: Spontaneous
  Country: IT (occurrence: IT)
  Receive Date: 20200511
  Receipt Date: 20200623
  Transmission Date: 20200714
  Serious: Yes (Death, Other)
  Sender: FDA-Public Use
  Company Number: IT-GLAXOSMITHKLINE-IT2020076097

PATIENT
  Age: 8 Year
  Sex: Female
  Weight: 15 kg

DRUGS (5)
  1. PRIVIGEN [Suspect]
     Active Substance: HUMAN IMMUNOGLOBULIN G
     Indication: GUILLAIN-BARRE SYNDROME
     Dosage: UNK
     Route: 042
     Dates: start: 20200416, end: 20200417
  2. IMIPENEM AND CILASTATIN [Suspect]
     Active Substance: CILASTATIN SODIUM\IMIPENEM
     Indication: CYSTIC FIBROSIS
     Dosage: UNK
     Route: 042
     Dates: start: 20200416, end: 20200417
  3. ZOVIRAX [Suspect]
     Active Substance: ACYCLOVIR
     Indication: CYSTIC FIBROSIS
     Dosage: UNK
     Route: 042
     Dates: start: 20200416, end: 20200417
  4. PRIVIGEN [Suspect]
     Active Substance: HUMAN IMMUNOGLOBULIN G
     Dosage: 2000 MG/KG, SINGLE
     Route: 042
     Dates: start: 20200416, end: 20200417
  5. OXACILLINE [Suspect]
     Active Substance: OXACILLIN SODIUM
     Indication: CYSTIC FIBROSIS
     Dosage: UNK
     Route: 042
     Dates: start: 20200416, end: 20200417

REACTIONS (3)
  - Off label use [Fatal]
  - Brain oedema [Fatal]
  - Brain herniation [Fatal]

NARRATIVE: CASE EVENT DATE: 20200417
